FAERS Safety Report 18328884 (Version 1)
Quarter: 2020Q3

REPORT INFORMATION
  Report Type: Report from Study
  Country: US (occurrence: US)
  Receive Date: 20200930
  Receipt Date: 20200930
  Transmission Date: 20201103
  Serious: Yes (Hospitalization)
  Sender: FDA-Public Use
  Company Number: US-BAUSCH-BL-2020-028008

PATIENT
  Age: 67 Year
  Sex: Male

DRUGS (3)
  1. XIFAXAN [Suspect]
     Active Substance: RIFAXIMIN
     Indication: HEPATIC ENCEPHALOPATHY
     Dosage: ABOUT A YEAR AGO
     Route: 048
     Dates: start: 2019
  2. LACTULOSE. [Concomitant]
     Active Substance: LACTULOSE
     Indication: PRODUCT USED FOR UNKNOWN INDICATION
     Route: 048
  3. ALKA?SELTZER [Concomitant]
     Active Substance: ANHYDROUS CITRIC ACID\ASPIRIN\SODIUM BICARBONATE
     Indication: PRODUCT USED FOR UNKNOWN INDICATION
     Dosage: AS NEEDED
     Route: 048

REACTIONS (12)
  - Speech disorder [Unknown]
  - Product dose omission issue [Unknown]
  - Confusional state [Not Recovered/Not Resolved]
  - Hypokinesia [Not Recovered/Not Resolved]
  - Heart rate irregular [Unknown]
  - Loss of personal independence in daily activities [Unknown]
  - Memory impairment [Unknown]
  - Diarrhoea [Unknown]
  - Ill-defined disorder [Unknown]
  - Dementia [Unknown]
  - Feeling abnormal [Unknown]
  - Ammonia increased [Recovering/Resolving]

NARRATIVE: CASE EVENT DATE: 2020
